FAERS Safety Report 18769195 (Version 1)
Quarter: 2021Q1

REPORT INFORMATION
  Report Type: Spontaneous
  Country: US (occurrence: US)
  Receive Date: 20210121
  Receipt Date: 20210121
  Transmission Date: 20210419
  Serious: No
  Sender: FDA-Public Use
  Company Number: US-SA-2021SA017454

PATIENT
  Age: 56 Year
  Sex: Male

DRUGS (1)
  1. LANTUS [Suspect]
     Active Substance: INSULIN GLARGINE
     Indication: TYPE 2 DIABETES MELLITUS
     Dosage: 20 IU, TWICE A DAY
     Route: 065

REACTIONS (4)
  - Incorrect dose administered by device [Unknown]
  - Multiple use of single-use product [Unknown]
  - Device malfunction [Unknown]
  - Inappropriate schedule of product administration [Unknown]
